FAERS Safety Report 18191139 (Version 1)
Quarter: 2020Q3

REPORT INFORMATION
  Report Type: Spontaneous
  Country: US (occurrence: US)
  Receive Date: 20200824
  Receipt Date: 20200824
  Transmission Date: 20201103
  Serious: Yes (Other)
  Sender: FDA-Public Use
  Company Number: None

PATIENT
  Age: 62 Year
  Sex: Female
  Weight: 76.5 kg

DRUGS (12)
  1. ZINC CARNOSINE [Concomitant]
  2. PROAIR RESPICLICK INHALER (RX) [Concomitant]
  3. RACEPINEPHRINE VIALS [Concomitant]
  4. MAGNESIUM [Concomitant]
     Active Substance: MAGNESIUM
  5. HOMEOPATHICS. [Concomitant]
     Active Substance: HOMEOPATHICS
  6. CEFACLOR. [Suspect]
     Active Substance: CEFACLOR
     Indication: TOOTH INFECTION
     Dosage: ?          QUANTITY:20 CAPSULE(S);?
     Route: 048
     Dates: start: 20200821
  7. PROBIOTIC PRN [Concomitant]
  8. CURCUMIN [Concomitant]
     Active Substance: CURCUMIN
  9. BENADRYL GEL CAPS (DYE?FREE) [Concomitant]
  10. EPINEPHRINE AUTO?INJECTOR (RX) [Concomitant]
  11. VITAMIN C [Concomitant]
     Active Substance: ASCORBIC ACID
  12. VITAMIN D3 [Concomitant]
     Active Substance: CHOLECALCIFEROL

REACTIONS (1)
  - Anaphylactic reaction [None]

NARRATIVE: CASE EVENT DATE: 20200821
